FAERS Safety Report 6270739-4 (Version None)
Quarter: 2009Q3

REPORT INFORMATION
  Report Type: 
  Country: None (occurrence: None)
  Receive Date: 20090716
  Receipt Date: 20090709
  Transmission Date: 20100115
  Serious: Yes (Other)
  Sender: FDA-Public Use
  Company Number: SE-NOVOPROD-289216

PATIENT
  Age: 78 Year
  Sex: Male

DRUGS (2)
  1. INSULATARD FLEXPEN [Suspect]
     Indication: TYPE 2 DIABETES MELLITUS
     Dosage: 25 U, QD
  2. NOVORAPID [Suspect]
     Indication: TYPE 2 DIABETES MELLITUS
     Dosage: VARIES, UNK

REACTIONS (7)
  - BLOOD GLUCOSE INCREASED [None]
  - COLON CANCER [None]
  - HYPERTONIA [None]
  - INJECTION SITE SWELLING [None]
  - NASOPHARYNGITIS [None]
  - RHINORRHOEA [None]
  - URTICARIA [None]
